FAERS Safety Report 10182962 (Version 1)
Quarter: 2014Q2

REPORT INFORMATION
  Report Type: Spontaneous
  Country: US (occurrence: US)
  Receive Date: 20140520
  Receipt Date: 20140520
  Transmission Date: 20141212
  Serious: No
  Sender: FDA-Public Use
  Company Number: US-BAYER-2014-071286

PATIENT
  Sex: 0

DRUGS (1)
  1. FINACEA [Suspect]

REACTIONS (3)
  - Tenderness [None]
  - Paraesthesia [None]
  - Burning sensation [None]
